FAERS Safety Report 24736440 (Version 1)
Quarter: 2024Q4

REPORT INFORMATION
  Report Type: Spontaneous
  Country: JP (occurrence: JP)
  Receive Date: 20241216
  Receipt Date: 20241216
  Transmission Date: 20250115
  Serious: Yes (Hospitalization, Other)
  Sender: ASTELLAS
  Company Number: JP-ASTELLAS-2024-AER-024221

PATIENT
  Age: 88 Year
  Sex: Male

DRUGS (4)
  1. PADCEV [Suspect]
     Active Substance: ENFORTUMAB VEDOTIN\ENFORTUMAB VEDOTIN-EJFV
     Indication: Ureteric cancer
     Route: 065
     Dates: start: 202411
  2. PADCEV [Suspect]
     Active Substance: ENFORTUMAB VEDOTIN\ENFORTUMAB VEDOTIN-EJFV
     Indication: Bladder cancer
  3. KEYTRUDA [Concomitant]
     Active Substance: PEMBROLIZUMAB
     Indication: Product used for unknown indication
     Route: 065
  4. VILDAGLIPTIN [Concomitant]
     Active Substance: VILDAGLIPTIN
     Indication: Type 2 diabetes mellitus
     Route: 048

REACTIONS (3)
  - Hyperglycaemia [Unknown]
  - Dementia [Unknown]
  - Learning disorder [Unknown]
